FAERS Safety Report 17622653 (Version 1)
Quarter: 2020Q2

REPORT INFORMATION
  Report Type: Spontaneous
  Country: FI (occurrence: FI)
  Receive Date: 20200403
  Receipt Date: 20200403
  Transmission Date: 20200713
  Serious: Yes (Hospitalization)
  Sender: FDA-Public Use
  Company Number: FI-PFIZER INC-2020136665

PATIENT
  Age: 33 Year
  Sex: Female

DRUGS (1)
  1. CHAMPIX [Suspect]
     Active Substance: VARENICLINE TARTRATE
     Indication: NICOTINE DEPENDENCE
     Dosage: UNK
     Route: 048
     Dates: start: 20190910, end: 20190924

REACTIONS (14)
  - Catheter site haematoma [Not Recovered/Not Resolved]
  - Renal failure [Not Recovered/Not Resolved]
  - Catheter site related reaction [Not Recovered/Not Resolved]
  - Ischaemic skin ulcer [Not Recovered/Not Resolved]
  - Lung assist device therapy [Not Recovered/Not Resolved]
  - Arterial spasm [Not Recovered/Not Resolved]
  - Peripheral artery thrombosis [Not Recovered/Not Resolved]
  - Catheter site haemorrhage [Not Recovered/Not Resolved]
  - Cytomegalovirus infection reactivation [Not Recovered/Not Resolved]
  - Myocarditis [Not Recovered/Not Resolved]
  - Cardiac failure [Not Recovered/Not Resolved]
  - Intensive care unit acquired weakness [Not Recovered/Not Resolved]
  - Catheter site infection [Not Recovered/Not Resolved]
  - Complication associated with device [Not Recovered/Not Resolved]

NARRATIVE: CASE EVENT DATE: 20190926
